FAERS Safety Report 9330506 (Version 1)
Quarter: 2013Q2

REPORT INFORMATION
  Report Type: Spontaneous
  Country: EG (occurrence: EG)
  Receive Date: 20130605
  Receipt Date: 20130605
  Transmission Date: 20140414
  Serious: Yes (Death)
  Sender: FDA-Public Use
  Company Number: EG-ROCHE-1232281

PATIENT
  Age: 27 Year
  Sex: Female

DRUGS (1)
  1. MABTHERA [Suspect]
     Indication: HODGKIN^S DISEASE
     Dosage: ONCE WEEKLY FOR 6 WEEKS
     Route: 041

REACTIONS (2)
  - Dermal cyst [Fatal]
  - Dehydration [Fatal]
